FAERS Safety Report 8953250 (Version 2)
Quarter: 2012Q4

REPORT INFORMATION
  Report Type: 
  Country: ES (occurrence: ES)
  Receive Date: 20121206
  Receipt Date: 20121218
  Transmission Date: 20130627
  Serious: Yes (Hospitalization)
  Sender: FDA-Public Use
  Company Number: ES-AMGEN-ESPSP2012076775

PATIENT
  Age: 76 Year

DRUGS (6)
  1. NEUPOGEN [Suspect]
     Indication: NEUTROPENIA
     Dosage: 30 mug, UNK
     Dates: start: 20120704, end: 20120709
  2. FLUCONAZOL [Suspect]
     Indication: ANTIFUNGAL PROPHYLAXIS
     Dosage: UNK
     Route: 048
     Dates: start: 20120705, end: 20120709
  3. ASPIRIN [Concomitant]
     Indication: PROPHYLAXIS
     Dosage: 100 mg, UNK
     Dates: start: 2009
  4. METFORMIN [Concomitant]
     Indication: TYPE 2 DIABETES MELLITUS
     Dosage: UNK
     Dates: start: 2008
  5. MEROPENEM [Concomitant]
     Indication: PNEUMONIA
     Dosage: 1 g, UNK
     Dates: start: 20120705
  6. ATENOLOL [Concomitant]
     Dosage: 25 mg, UNK
     Dates: start: 20120705

REACTIONS (1)
  - Hepatitis [Recovered/Resolved]
